FAERS Safety Report 9750337 (Version 1)
Quarter: 2013Q4

REPORT INFORMATION
  Report Type: Spontaneous
  Country: FR (occurrence: FR)
  Receive Date: 20131212
  Receipt Date: 20131212
  Transmission Date: 20140711
  Serious: Yes (Other)
  Sender: FDA-Public Use
  Company Number: FR-OTSUKA-US-2013-12324

PATIENT
  Sex: 0

DRUGS (1)
  1. BUSULFEX [Suspect]
     Indication: PRODUCT USED FOR UNKNOWN INDICATION

REACTIONS (5)
  - Polyneuropathy [Unknown]
  - Rash generalised [Unknown]
  - Nephropathy [Unknown]
  - Anaphylactic shock [Unknown]
  - Adverse drug reaction [Unknown]
